FAERS Safety Report 6972955-2 (Version None)
Quarter: 2010Q3

REPORT INFORMATION
  Report Type: 
  Country: None (occurrence: None)
  Receive Date: 20100909
  Receipt Date: 20100809
  Transmission Date: 20110219
  Serious: No
  Sender: FDA-Public Use
  Company Number: US-KINGPHARMUSA00001-K201000998

PATIENT
  Sex: Female

DRUGS (1)
  1. EMBEDA [Suspect]
     Dosage: 80 MG, SINGLE
     Route: 048
     Dates: start: 20100101, end: 20100101

REACTIONS (5)
  - DRUG ABUSE [None]
  - DRUG DIVERSION [None]
  - MALAISE [None]
  - VOMITING [None]
  - WITHDRAWAL SYNDROME [None]
